FAERS Safety Report 6112078-8 (Version None)
Quarter: 2009Q1

REPORT INFORMATION
  Report Type: 
  Country: None (occurrence: None)
  Receive Date: 20090311
  Receipt Date: 20090227
  Transmission Date: 20090719
  Serious: Yes (Other)
  Sender: FDA-Public Use
  Company Number: US-PFIZER INC-2009179952

PATIENT
  Sex: Female
  Weight: 68.027 kg

DRUGS (20)
  1. CHANTIX [Suspect]
     Indication: SMOKING CESSATION THERAPY
     Dosage: .05 MG, 1X/DAY
     Dates: start: 20090221
  2. PLAVIX [Concomitant]
     Dosage: UNK
  3. COREG [Concomitant]
     Dosage: UNK
  4. NITROGLYCERIN [Concomitant]
     Dosage: UNK
  5. DIGOXIN [Concomitant]
  6. ACETYLSALICYLIC ACID [Concomitant]
     Dosage: UNK
  7. PROZAC [Concomitant]
     Dosage: UNK
  8. VALIUM [Concomitant]
     Dosage: UNK
  9. DEMADEX [Concomitant]
     Dosage: UNK
  10. POTASSIUM CHLORIDE [Concomitant]
     Dosage: UNK
  11. VITAMIN B-12 [Concomitant]
     Dosage: UNK
  12. TRICOR [Concomitant]
     Dosage: UNK
  13. NOVOLOG [Concomitant]
     Dosage: UNK
  14. CALCIUM [Concomitant]
     Dosage: UNK
  15. VITAMIN D [Concomitant]
     Dosage: UNK
  16. LUMIGAN [Concomitant]
     Dosage: UNK
  17. FISH OIL [Concomitant]
     Dosage: UNK
  18. MULTIPLE VITAMINS [Concomitant]
     Dosage: UNK
  19. OLMESARTAN [Concomitant]
     Dosage: UNK
  20. DARVOCET [Concomitant]
     Dosage: UNK

REACTIONS (8)
  - BLOOD GLUCOSE DECREASED [None]
  - CRYING [None]
  - IRRITABILITY [None]
  - NERVOUSNESS [None]
  - NIGHTMARE [None]
  - SELF-INJURIOUS IDEATION [None]
  - SUICIDAL IDEATION [None]
  - THINKING ABNORMAL [None]
